FAERS Safety Report 23631103 (Version 2)
Quarter: 2024Q2

REPORT INFORMATION
  Report Type: Report from Study
  Country: GB (occurrence: GB)
  Receive Date: 20240314
  Receipt Date: 20240402
  Transmission Date: 20240716
  Serious: Yes (Hospitalization, Other)
  Sender: FDA-Public Use
  Company Number: GB-SANDOZ-SDZ2024GB027145

PATIENT
  Sex: Male

DRUGS (1)
  1. HYRIMOZ [Suspect]
     Active Substance: ADALIMUMAB-ADAZ
     Indication: Crohn^s disease
     Dosage: 40.0 MG, QW
     Route: 058
     Dates: start: 20231206

REACTIONS (4)
  - Sepsis [Unknown]
  - Loss of consciousness [Recovered/Resolved]
  - Urinary tract infection [Unknown]
  - Product prescribing error [Unknown]
